FAERS Safety Report 11679972 (Version 2)
Quarter: 2015Q4

REPORT INFORMATION
  Report Type: Spontaneous
  Country: US (occurrence: US)
  Receive Date: 20151027
  Receipt Date: 20151104
  Transmission Date: 20160304
  Serious: No
  Sender: FDA-Public Use
  Company Number: US-ELI_LILLY_AND_COMPANY-US201008000666

PATIENT
  Age: 73 Year
  Sex: Female

DRUGS (7)
  1. CHLORDIAZEPOXIDE W/CLIDINIUM [Concomitant]
  2. SUMATRIPTAN SULFATE [Concomitant]
     Dosage: 25 MG, AS NEEDED
  3. FORTEO [Suspect]
     Active Substance: TERIPARATIDE
     Dosage: 20 UG, QD
     Route: 065
  4. FORTEO [Suspect]
     Active Substance: TERIPARATIDE
     Indication: OSTEOPOROSIS
     Dosage: UNK,UNK
     Dates: start: 201004
  5. NEXIUM [Concomitant]
     Active Substance: ESOMEPRAZOLE MAGNESIUM
     Dosage: UNK, DAILY (1/D)
  6. OXYCODONE [Concomitant]
     Active Substance: OXYCODONE
     Dates: start: 20110125, end: 20110125
  7. LAMOTRIGINE. [Concomitant]
     Active Substance: LAMOTRIGINE
     Dosage: 100 MG, EACH MORNING

REACTIONS (8)
  - Musculoskeletal pain [Recovering/Resolving]
  - Feeling abnormal [Unknown]
  - Shoulder operation [Recovering/Resolving]
  - Dizziness [Recovered/Resolved]
  - Pruritus [Unknown]
  - Exostosis [Unknown]
  - Drug dose omission [Recovered/Resolved]
  - Malaise [Unknown]

NARRATIVE: CASE EVENT DATE: 20110118
